FAERS Safety Report 9899009 (Version 4)
Quarter: 2014Q3

REPORT INFORMATION
  Report Type: Spontaneous
  Country: JP (occurrence: JP)
  Receive Date: 20140214
  Receipt Date: 20140703
  Transmission Date: 20150326
  Serious: Yes (Hospitalization, Other)
  Sender: FDA-Public Use
  Company Number: JP-GLAXOSMITHKLINE-B0969196A

PATIENT
  Age: 70 Year
  Sex: Female
  Weight: 52 kg

DRUGS (4)
  1. PERAPRIN [Concomitant]
     Active Substance: METOCLOPRAMIDE
     Dosage: 10MG PER DAY
     Route: 042
     Dates: start: 20130514, end: 20130531
  2. HYCAMTIN [Suspect]
     Active Substance: TOPOTECAN HYDROCHLORIDE
     Indication: OVARIAN CANCER RECURRENT
     Route: 042
     Dates: start: 20130415, end: 20130824
  3. RASENAZOLIN [Concomitant]
     Active Substance: CEFAZOLIN SODIUM
     Dosage: 1G PER DAY
     Route: 042
     Dates: start: 20130501, end: 20130627
  4. GRANISETRON [Concomitant]
     Active Substance: GRANISETRON
     Dosage: 3MG PER DAY
     Route: 042
     Dates: start: 20130415, end: 20130921

REACTIONS (10)
  - Decreased appetite [Recovered/Resolved]
  - Neutrophil count decreased [Unknown]
  - White blood cell count decreased [Unknown]
  - Red blood cell count decreased [Recovering/Resolving]
  - Anaemia [Recovering/Resolving]
  - Fatigue [Recovered/Resolved]
  - Febrile neutropenia [Recovering/Resolving]
  - Pyrexia [Recovered/Resolved]
  - Platelet count decreased [Unknown]
  - Nausea [Recovered/Resolved]

NARRATIVE: CASE EVENT DATE: 20130417
